FAERS Safety Report 15950151 (Version 2)
Quarter: 2019Q4

REPORT INFORMATION
  Report Type: Spontaneous
  Country: NO (occurrence: NO)
  Receive Date: 20190211
  Receipt Date: 20191024
  Transmission Date: 20200122
  Serious: Yes (Hospitalization)
  Sender: FDA-Public Use
  Company Number: PHHY2019NO027763

PATIENT
  Sex: Male

DRUGS (5)
  1. METOPROLOL SANDOZ [Suspect]
     Active Substance: METOPROLOL
     Indication: ANGINA PECTORIS
     Dosage: UNK
     Route: 065
     Dates: start: 20160112, end: 20160128
  2. VISIPAQUE [Concomitant]
     Active Substance: IODIXANOL
     Indication: MUCOSAL PAIN
     Dosage: ONE DOSE AT THE CLINIC
     Route: 065
  3. NITROGLYCERIN. [Concomitant]
     Active Substance: NITROGLYCERIN
     Indication: ANGINA PECTORIS
     Dosage: UNK
     Route: 065
  4. SELOZOK [Concomitant]
     Active Substance: METOPROLOL SUCCINATE
     Dosage: UNK
     Route: 065
     Dates: start: 20160112, end: 20160128
  5. PREDNISOLON [Concomitant]
     Active Substance: PREDNISOLONE
     Indication: MUCOSAL PAIN
     Dosage: UNK
     Route: 065
     Dates: start: 20151223

REACTIONS (5)
  - Heart rate decreased [Unknown]
  - Dyspnoea [Unknown]
  - Poor quality sleep [Unknown]
  - Breast pain [Unknown]
  - Oropharyngeal pain [Unknown]
